FAERS Safety Report 6679432-7 (Version None)
Quarter: 2010Q2

REPORT INFORMATION
  Report Type: 
  Country: None (occurrence: None)
  Receive Date: 20100408
  Receipt Date: 20100316
  Transmission Date: 20101027
  Serious: No
  Sender: FDA-Public Use
  Company Number: 2010-00358

PATIENT
  Age: 55 Year
  Sex: Female
  Weight: 90.7194 kg

DRUGS (8)
  1. ZICAM COLD REMEDY CHEWABLES [Suspect]
     Dosage: QID - 2 DAYS
     Dates: start: 20100312, end: 20100314
  2. PROZAC [Concomitant]
  3. WELLBUTRIN [Concomitant]
  4. ACYCLOVIR [Concomitant]
  5. MINOCYCLINE [Concomitant]
  6. VITAMIN B COMPLEX CAP [Concomitant]
  7. IRON [Concomitant]
  8. CALCIUM W/D [Concomitant]

REACTIONS (1)
  - AGEUSIA [None]
